FAERS Safety Report 16734476 (Version 2)
Quarter: 2019Q3

REPORT INFORMATION
  Report Type: Report from Study
  Country: None (occurrence: US)
  Receive Date: 20190823
  Receipt Date: 20190909
  Transmission Date: 20191005
  Serious: Yes (Hospitalization, Other)
  Sender: FDA-Public Use
  Company Number: US-ABBVIE-19K-163-2897702-00

PATIENT
  Age: 89 Year
  Sex: Female
  Weight: 50.39 kg

DRUGS (1)
  1. CREON [Suspect]
     Active Substance: PANCRELIPASE AMYLASE\PANCRELIPASE LIPASE\PANCRELIPASE PROTEASE
     Indication: PANCREATITIS CHRONIC
     Route: 048
     Dates: start: 201509

REACTIONS (12)
  - Leukaemia [Unknown]
  - Amnesia [Recovering/Resolving]
  - Contusion [Recovering/Resolving]
  - Thrombocytopenia [Recovered/Resolved]
  - Cardiac failure congestive [Recovering/Resolving]
  - Stomatitis [Recovering/Resolving]
  - Thrombocytopenia [Recovering/Resolving]
  - Petechiae [Recovering/Resolving]
  - Malaise [Recovering/Resolving]
  - Herpes zoster [Not Recovered/Not Resolved]
  - Oral mucosal discolouration [Recovering/Resolving]
  - Dyspnoea [Recovered/Resolved]

NARRATIVE: CASE EVENT DATE: 2019
